FAERS Safety Report 17870965 (Version 1)
Quarter: 2020Q2

REPORT INFORMATION
  Report Type: Spontaneous
  Country: FR (occurrence: FR)
  Receive Date: 20200608
  Receipt Date: 20200608
  Transmission Date: 20200714
  Serious: Yes (Other)
  Sender: FDA-Public Use
  Company Number: NVSC2020FR155662

PATIENT
  Age: 72 Year
  Sex: Male

DRUGS (4)
  1. FLECAINE LP [Concomitant]
     Active Substance: FLECAINIDE
     Indication: PRODUCT USED FOR UNKNOWN INDICATION
     Dosage: 100 MG, QD
     Route: 048
     Dates: start: 2018, end: 2018
  2. SILODOSIN. [Suspect]
     Active Substance: SILODOSIN
     Indication: URINARY TRACT DISORDER
     Dosage: 8 MG, QD
     Route: 048
     Dates: start: 202002, end: 202002
  3. IRBESARTAN. [Concomitant]
     Active Substance: IRBESARTAN
     Indication: PRODUCT USED FOR UNKNOWN INDICATION
     Dosage: 300 MG, QD
     Route: 048
     Dates: start: 2018
  4. SILODOSIN. [Suspect]
     Active Substance: SILODOSIN
     Indication: BENIGN PROSTATIC HYPERPLASIA

REACTIONS (4)
  - Anxiety [Recovered/Resolved]
  - Dyspnoea at rest [Recovered/Resolved]
  - Nasal congestion [Recovered/Resolved]
  - Lymphopenia [Unknown]

NARRATIVE: CASE EVENT DATE: 2020
